FAERS Safety Report 6884271-8 (Version None)
Quarter: 2010Q3

REPORT INFORMATION
  Report Type: 
  Country: None (occurrence: None)
  Receive Date: 20100729
  Receipt Date: 20070419
  Transmission Date: 20110219
  Serious: Yes (Hospitalization, Disabling, Other)
  Sender: FDA-Public Use
  Company Number: US-PFIZER INC-2007057873

PATIENT
  Sex: Female
  Weight: 86.2 kg

DRUGS (3)
  1. CELEBREX [Suspect]
     Indication: BACK DISORDER
     Route: 048
     Dates: start: 20001128
  2. CELEBREX [Suspect]
     Indication: PAIN MANAGEMENT
  3. CELEBREX [Suspect]
     Indication: ARTHRITIS

REACTIONS (2)
  - CEREBROVASCULAR ACCIDENT [None]
  - RENAL FAILURE [None]
